FAERS Safety Report 20082065 (Version 1)
Quarter: 2021Q4

REPORT INFORMATION
  Report Type: Spontaneous
  Country: None (occurrence: US)
  Receive Date: 20211117
  Receipt Date: 20211117
  Transmission Date: 20220304
  Serious: No
  Sender: FDA-Public Use
  Company Number: US-Matrixx Initiatives, Inc.-2121972

PATIENT
  Age: 15 Year
  Sex: Male
  Weight: 90.909 kg

DRUGS (1)
  1. ZICAM EXTREME CONGESTION RELIEF (OXYMETAZOLINE HYDROCHLORIDE) [Suspect]
     Active Substance: OXYMETAZOLINE HYDROCHLORIDE
     Route: 045
     Dates: start: 20211022, end: 20211027

REACTIONS (2)
  - Anosmia [None]
  - Dysgeusia [None]
